FAERS Safety Report 8878838 (Version 1)
Quarter: 2012Q4

REPORT INFORMATION
  Report Type: 
  Country: ES (occurrence: ES)
  Receive Date: 20121026
  Receipt Date: 20121026
  Transmission Date: 20130627
  Serious: Yes (Hospitalization)
  Sender: FDA-Public Use
  Company Number: ES-BRISTOL-MYERS SQUIBB COMPANY-17044603

PATIENT
  Age: 42 Year
  Sex: Female

DRUGS (5)
  1. REYATAZ [Suspect]
     Indication: HIV INFECTION
     Route: 048
     Dates: start: 20120102, end: 20120507
  2. KALETRA [Suspect]
     Indication: HIV INFECTION
     Route: 048
     Dates: start: 20110201, end: 20120102
  3. TRUVADA [Suspect]
     Indication: HIV INFECTION
     Dosage: Tenofovir/Emicitabine:200/245mg
     Route: 048
     Dates: start: 20120102
  4. ZIDOVUDINE [Suspect]
     Indication: HIV INFECTION
     Route: 048
     Dates: start: 20110201, end: 20120102
  5. LAMIVUDINE [Suspect]
     Indication: HIV INFECTION
     Route: 048
     Dates: start: 20110201, end: 20120102

REACTIONS (1)
  - Osteonecrosis [Not Recovered/Not Resolved]
